FAERS Safety Report 9407340 (Version 1)
Quarter: 2013Q3

REPORT INFORMATION
  Report Type: Spontaneous
  Country: CO (occurrence: CO)
  Receive Date: 20130718
  Receipt Date: 20130718
  Transmission Date: 20140515
  Serious: Yes (Other)
  Sender: FDA-Public Use
  Company Number: CO-PFIZER INC-2013134743

PATIENT
  Age: 73 Year
  Sex: Female

DRUGS (14)
  1. LYRICA [Suspect]
     Indication: INFLAMMATION
     Dosage: 75 MG, 1X/DAY
     Route: 048
     Dates: start: 2011
  2. LYRICA [Suspect]
     Indication: OSTEOPOROSIS
     Dosage: 75 MG, 1X/DAY
     Route: 048
     Dates: start: 201303
  3. LYRICA [Suspect]
     Indication: OSTEOARTHRITIS
  4. ALOND [Suspect]
     Indication: OSTEOARTHRITIS
     Dosage: 75 MG, 1X/DAY
     Route: 048
     Dates: start: 2012
  5. AMLODIPINE [Concomitant]
     Indication: HYPERTENSION
     Dosage: 5 MG, 1X/DAY
     Route: 048
     Dates: start: 2001
  6. ESOMEPRAZOLE [Concomitant]
     Indication: GASTRITIS
     Dosage: 40 MG, 1X/DAY
     Route: 048
     Dates: start: 2010, end: 20130406
  7. ACETYLSALICYLIC ACID [Concomitant]
     Indication: ANGINA PECTORIS
     Dosage: 100 MG, 1X/DAY
     Route: 048
     Dates: start: 2003
  8. LOVASTATIN [Concomitant]
     Indication: ANGINA PECTORIS
     Dosage: 20 MG, 3X/DAY
     Route: 048
     Dates: start: 2003
  9. ACETAMINOPHEN [Concomitant]
     Indication: PAIN
     Dosage: 500 MG, 6 TABLETS DAILY
     Route: 048
     Dates: start: 2013
  10. ACETAMINOPHEN [Concomitant]
     Indication: OSTEOPOROSIS
  11. ACETAMINOPHEN [Concomitant]
     Indication: BONE DISORDER
  12. ACETAMINOPHEN [Concomitant]
     Indication: SPINAL DISORDER
  13. ACETAMINOPHEN [Concomitant]
     Indication: ARTHRALGIA
  14. TRAMADOL [Concomitant]
     Indication: PAIN
     Dosage: 10 MG, 14 OR 15 DROPS DAILY
     Route: 048
     Dates: start: 2007

REACTIONS (7)
  - Off label use [Unknown]
  - Cataract [Recovering/Resolving]
  - Arthralgia [Not Recovered/Not Resolved]
  - Arthralgia [Not Recovered/Not Resolved]
  - Gastritis [Unknown]
  - Bone loss [Unknown]
  - Drug ineffective for unapproved indication [Unknown]
